FAERS Safety Report 8455126-2 (Version None)
Quarter: 2012Q2

REPORT INFORMATION
  Report Type: 
  Country: None (occurrence: None)
  Receive Date: 20120621
  Receipt Date: 20120613
  Transmission Date: 20120825
  Serious: Yes (Hospitalization, Other)
  Sender: FDA-Public Use
  Company Number: US-US-EMD SERONO, INC.-7140682

PATIENT
  Sex: Female

DRUGS (2)
  1. VICODIN [Concomitant]
     Indication: PRODUCT USED FOR UNKNOWN INDICATION
  2. REBIF [Suspect]
     Indication: MULTIPLE SCLEROSIS
     Route: 058
     Dates: start: 20080407, end: 20120501

REACTIONS (7)
  - TACHYCARDIA [None]
  - DIPLOPIA [None]
  - SPINAL OPERATION [None]
  - VERTIGO [None]
  - FALL [None]
  - HEADACHE [None]
  - MYALGIA [None]
